FAERS Safety Report 16668322 (Version 1)
Quarter: 2019Q3

REPORT INFORMATION
  Report Type: Spontaneous
  Country: US (occurrence: US)
  Receive Date: 20190805
  Receipt Date: 20190805
  Transmission Date: 20191004
  Serious: Yes (Other)
  Sender: FDA-Public Use
  Company Number: US-PFIZER INC-2015328855

PATIENT
  Age: 80 Year
  Sex: Female
  Weight: 82 kg

DRUGS (4)
  1. LYRICA [Suspect]
     Active Substance: PREGABALIN
     Dosage: 100 MG, 2X/DAY [100MG, TWICE A DAY]
  2. LYRICA [Suspect]
     Active Substance: PREGABALIN
     Indication: FIBROMYALGIA
     Dosage: 200 MG, 2X/DAY [1 CAP BID (TWICE A DAY)]
     Route: 048
  3. LYRICA [Suspect]
     Active Substance: PREGABALIN
     Dosage: 75 MG, 2X/DAY [75MG, TWICE DAILY]
  4. LYRICA [Suspect]
     Active Substance: PREGABALIN
     Dosage: 200 MG, 3X/DAY [TAKE 1 CAPSULE (200 MG TOTAL) BY MOUTH THREE TIMES DAILY]
     Route: 048

REACTIONS (3)
  - Intentional product use issue [Unknown]
  - Spinal deformity [Unknown]
  - Neuropathy peripheral [Unknown]
